FAERS Safety Report 7867671-9 (Version None)
Quarter: 2011Q4

REPORT INFORMATION
  Report Type: 
  Country: None (occurrence: None)
  Receive Date: 20111028
  Receipt Date: 20100412
  Transmission Date: 20120403
  Serious: No
  Sender: FDA-Public Use
  Company Number: US-BAYER-201019431NA

PATIENT
  Age: 79 Year
  Sex: Male

DRUGS (7)
  1. LEVITRA [Suspect]
     Indication: ERECTILE DYSFUNCTION
     Dosage: 10 MG, PRN
     Route: 048
     Dates: start: 20100410, end: 20100411
  2. PREDNISONE [Concomitant]
  3. FLOMAX [Concomitant]
  4. SPIRIVA [Concomitant]
  5. METOLAZONE [Concomitant]
  6. DIURETICS [Concomitant]
  7. ZYRTEC [Concomitant]

REACTIONS (1)
  - ERECTILE DYSFUNCTION [None]
